FAERS Safety Report 8201462-4 (Version None)
Quarter: 2012Q1

REPORT INFORMATION
  Report Type: 
  Country: None (occurrence: None)
  Receive Date: 20120307
  Receipt Date: 20120228
  Transmission Date: 20120608
  Serious: Yes (Hospitalization)
  Sender: FDA-Public Use
  Company Number: 2011SP047592

PATIENT
  Age: 49 Year
  Sex: Male

DRUGS (15)
  1. OXYCONTIN [Concomitant]
  2. DEXAMETHASONE [Concomitant]
  3. NEO CYTAMEN [Concomitant]
  4. QUESTRAN [Concomitant]
  5. OSTEOFOS [Concomitant]
  6. IMODIUM [Concomitant]
  7. ZOPITAN [Concomitant]
  8. ACETAMINOPHEN [Concomitant]
  9. KEPPRA [Concomitant]
  10. OMEPRAZOLE [Concomitant]
  11. MOTILIUM [Concomitant]
  12. TEMODAL [Suspect]
     Indication: MIXED OLIGO-ASTROCYTOMA
     Dosage: 310 MG; 150 MG/M2;QD
     Dates: start: 20111028, end: 20111102
  13. TEMODAL [Suspect]
     Indication: MIXED OLIGO-ASTROCYTOMA
     Dosage: 310 MG; 150 MG/M2;QD
     Dates: start: 20110905
  14. TEMODAL [Suspect]
     Indication: MIXED OLIGO-ASTROCYTOMA
     Dosage: 310 MG; 150 MG/M2;QD
     Dates: start: 20111003
  15. FOLIC ACID [Concomitant]

REACTIONS (5)
  - MUSCLE STRAIN [None]
  - COMPRESSION FRACTURE [None]
  - VOMITING [None]
  - FALL [None]
  - LUMBAR VERTEBRAL FRACTURE [None]
